FAERS Safety Report 5939094-0 (Version None)
Quarter: 2008Q4

REPORT INFORMATION
  Report Type: 
  Country: None (occurrence: None)
  Receive Date: 20081103
  Receipt Date: 20081030
  Transmission Date: 20090506
  Serious: Yes (Hospitalization, Other)
  Sender: FDA-Public Use
  Company Number: B0532376A

PATIENT
  Age: 38 Year
  Sex: Male

DRUGS (8)
  1. SAWACILLIN [Suspect]
     Dosage: .25G FOUR TIMES PER DAY
     Route: 048
     Dates: start: 20080326, end: 20080331
  2. PREDNISOLONE [Concomitant]
     Indication: PUSTULAR PSORIASIS
     Route: 065
  3. BIOTINE [Concomitant]
     Indication: PSORIASIS
     Dosage: 1G TWICE PER DAY
     Dates: start: 20080319, end: 20080330
  4. EPINASTINE HYDROCHLORIDE [Concomitant]
     Indication: PRURITUS
     Dosage: 20MG PER DAY
     Dates: start: 20080319, end: 20080407
  5. LOXOPROFEN SODIUM [Concomitant]
     Indication: ARTHRALGIA
     Dosage: 60MG TWICE PER DAY
     Route: 048
     Dates: start: 20080326, end: 20080407
  6. REBAMIPIDE [Concomitant]
     Indication: GASTRITIS PROPHYLAXIS
     Dosage: 100MG TWICE PER DAY
     Route: 048
     Dates: start: 20080326, end: 20080407
  7. FAMOTIDINE [Concomitant]
     Indication: GASTRITIS PROPHYLAXIS
     Dosage: 20MG PER DAY
     Route: 048
     Dates: start: 20080324, end: 20080407
  8. PREDNISOLONE [Concomitant]
     Indication: PSORIASIS
     Route: 048
     Dates: start: 20080324, end: 20080415

REACTIONS (4)
  - ACUTE GENERALISED EXANTHEMATOUS PUSTULOSIS [None]
  - DERMATITIS EXFOLIATIVE [None]
  - PYREXIA [None]
  - RASH PUSTULAR [None]
